FAERS Safety Report 24337093 (Version 1)
Quarter: 2024Q3

REPORT INFORMATION
  Report Type: Report from Study
  Country: NL (occurrence: NL)
  Receive Date: 20240919
  Receipt Date: 20240919
  Transmission Date: 20241016
  Serious: Yes (Death, Hospitalization)
  Sender: ROCHE
  Company Number: None

PATIENT
  Age: 24 Year
  Sex: Male

DRUGS (7)
  1. MYCOPHENOLATE MOFETIL [Suspect]
     Active Substance: MYCOPHENOLATE MOFETIL
     Indication: Liver transplant
     Dosage: UNK UNK, UNKNOWN FREQUENCY
     Route: 065
  2. PREDNISONE [Suspect]
     Active Substance: PREDNISONE
     Indication: Liver transplant
     Dosage: UNK UNK, UNKNOWN FREQUENCY (TAPERED TO 0 MG WITHIN THE FIRST 3-6 MONTHS)
     Route: 065
  3. PREDNISONE [Suspect]
     Active Substance: PREDNISONE
     Dosage: UNK UNK, UNKNOWN FREQUENCY
     Route: 065
  4. METHYLPREDNISOLONE [Suspect]
     Active Substance: METHYLPREDNISOLONE
     Indication: Transplant rejection
     Dosage: 1 G, UNKNOWN FREQUENCY (TWO PULSED COURSES)
     Route: 042
  5. TACROLIMUS [Suspect]
     Active Substance: TACROLIMUS
     Indication: Liver transplant
     Dosage: UNK UNK, UNKNOWN FREQUENCY (STARTED ON DAY 5)
     Route: 065
  6. PREDNISOLONE [Suspect]
     Active Substance: PREDNISOLONE
     Indication: Liver transplant
     Route: 065
  7. DICLOFENAC [Concomitant]
     Active Substance: DICLOFENAC
     Indication: Prophylaxis
     Dosage: 100 MG, UNKNOWN FREQUENCY (ONE DOSE)
     Route: 054

REACTIONS (2)
  - Renal failure [Fatal]
  - Pancreatitis necrotising [Fatal]
